FAERS Safety Report 13650346 (Version 1)
Quarter: 2017Q2

REPORT INFORMATION
  Report Type: Spontaneous
  Country: FR (occurrence: FR)
  Receive Date: 20170614
  Receipt Date: 20170614
  Transmission Date: 20170830
  Serious: Yes (Death)
  Sender: FDA-Public Use
  Company Number: FR-AXELLIA-001111

PATIENT
  Age: 43 Year
  Sex: Female

DRUGS (2)
  1. CASPOFUNGIN [Suspect]
     Active Substance: CASPOFUNGIN
     Indication: ASPERGILLUS INFECTION
     Dosage: RECEIVED 70 MG ON THE FIRST DAY AND THEN 50 MG DAILY
  2. VORICONAZOLE. [Suspect]
     Active Substance: VORICONAZOLE
     Indication: ASPERGILLUS INFECTION
     Dosage: 800 MG (13 MG/KG) ON THE FIRST DAY, THEN 400 MG DAILY (6 MG/KG) WAS INITIATED ON DAY-21
     Route: 042

REACTIONS (1)
  - Treatment failure [Fatal]
